FAERS Safety Report 8994654 (Version 3)
Quarter: 2013Q3

REPORT INFORMATION
  Report Type: Spontaneous
  Country: US (occurrence: US)
  Receive Date: 20130102
  Receipt Date: 20130912
  Transmission Date: 20140515
  Serious: Yes (Other)
  Sender: FDA-Public Use
  Company Number: US-AMGEN-USASP2012079475

PATIENT
  Age: 27 Year
  Sex: Female

DRUGS (3)
  1. ENBREL [Suspect]
     Indication: RHEUMATOID ARTHRITIS
     Dosage: 50 MG, QWK
     Route: 058
     Dates: start: 20110105, end: 2012
  2. HUMIRA [Concomitant]
     Dosage: UNK
  3. REMICADE [Concomitant]
     Dosage: UNK, EVERY 8 WEEKS.
     Route: 042

REACTIONS (4)
  - Costochondritis [Unknown]
  - Rheumatoid arthritis [Not Recovered/Not Resolved]
  - Fatigue [Unknown]
  - Drug ineffective [Not Recovered/Not Resolved]
